FAERS Safety Report 11093848 (Version 3)
Quarter: 2015Q3

REPORT INFORMATION
  Report Type: Spontaneous
  Country: US (occurrence: US)
  Receive Date: 20150506
  Receipt Date: 20150819
  Transmission Date: 20151125
  Serious: No
  Sender: FDA-Public Use
  Company Number: US-009507513-1505USA000730

PATIENT
  Age: 30 Year
  Sex: Female
  Weight: 121.54 kg

DRUGS (5)
  1. PRILOSEC [Concomitant]
     Active Substance: OMEPRAZOLE MAGNESIUM
  2. HYDROCODONE [Concomitant]
     Active Substance: HYDROCODONE
  3. NEXPLANON [Suspect]
     Active Substance: ETONOGESTREL
     Indication: MENSTRUAL CYCLE MANAGEMENT
     Dosage: 1 DF, 3 YEARS, LEFT ARM
     Route: 059
     Dates: start: 20140414
  4. NAPROXEN. [Concomitant]
     Active Substance: NAPROXEN
  5. FLUOXETINE [Concomitant]
     Active Substance: FLUOXETINE\FLUOXETINE HYDROCHLORIDE

REACTIONS (8)
  - Chest pain [Unknown]
  - Pain in extremity [Unknown]
  - Drug administration error [Unknown]
  - Muscle spasms [Unknown]
  - Device breakage [Not Recovered/Not Resolved]
  - Mood altered [Unknown]
  - Discomfort [Unknown]
  - Menorrhagia [Recovered/Resolved]

NARRATIVE: CASE EVENT DATE: 20140414
